FAERS Safety Report 5455758-X (Version None)
Quarter: 2007Q3

REPORT INFORMATION
  Report Type: 
  Country: None (occurrence: None)
  Receive Date: 20070918
  Receipt Date: 20070228
  Transmission Date: 20080115
  Serious: Yes (Other)
  Sender: FDA-Public Use
  Company Number: US-ASTRAZENECA-2006UW22562

PATIENT
  Age: 568 Month
  Sex: Female
  Weight: 54.5 kg

DRUGS (9)
  1. SEROQUEL [Suspect]
     Route: 048
  2. ABILIFY [Concomitant]
  3. NEURONTIN [Concomitant]
  4. METHYLIN [Concomitant]
  5. PROZAC [Concomitant]
  6. BUSPAR [Concomitant]
  7. ATIVAN [Concomitant]
  8. WELLBUTRIN [Concomitant]
  9. LORAZEPAM [Concomitant]

REACTIONS (2)
  - DIABETES MELLITUS [None]
  - PANCREATITIS [None]
